FAERS Safety Report 16715304 (Version 1)
Quarter: 2019Q3

REPORT INFORMATION
  Report Type: Spontaneous
  Country: DE (occurrence: DE)
  Receive Date: 20190819
  Receipt Date: 20190819
  Transmission Date: 20191005
  Serious: Yes (Other)
  Sender: FDA-Public Use
  Company Number: DE-ALEMBIC PHARMACUETICALS LIMITED-2019SCAL000539

PATIENT

DRUGS (4)
  1. OXAZEPAM. [Concomitant]
     Active Substance: OXAZEPAM
     Indication: INSOMNIA
     Dosage: 20 MILLIGRAM, OD AT BEDTIME
  2. RISPERIDONE. [Suspect]
     Active Substance: RISPERIDONE
     Indication: HALLUCINATION, VISUAL
     Dosage: 0.5 MILLIGRAM, BID
  3. RIVASTIGMINE TARTARATE [Suspect]
     Active Substance: RIVASTIGMINE TARTRATE
     Indication: DELIRIUM
     Dosage: TRANSDERMAL PATCHES 9.5 MILLIGRAM, OD
     Route: 062
  4. QUETIAPINE FUMARATE. [Suspect]
     Active Substance: QUETIAPINE FUMARATE
     Indication: HALLUCINATION, VISUAL
     Dosage: 50 MILLIGRAM, BID

REACTIONS (4)
  - Delirium [Recovered/Resolved]
  - Hypersomnia [Recovered/Resolved]
  - Drug effective for unapproved indication [Unknown]
  - Condition aggravated [Recovered/Resolved]
